FAERS Safety Report 7980249-1 (Version None)
Quarter: 2011Q4

REPORT INFORMATION
  Report Type: 
  Country: None (occurrence: None)
  Receive Date: 20111214
  Receipt Date: 20111208
  Transmission Date: 20120403
  Serious: No
  Sender: FDA-Public Use
  Company Number: US-B.I. PHARMACEUTICALS,INC./RIDGEFIELD-2011-BP-25534BP

PATIENT
  Sex: Male

DRUGS (4)
  1. CALCIUM [Concomitant]
  2. PRADAXA [Suspect]
     Indication: ATRIAL FIBRILLATION
     Dosage: 300 MG
     Route: 048
     Dates: start: 20110501
  3. CRESTOR [Concomitant]
     Indication: BLOOD CHOLESTEROL INCREASED
     Dosage: 20 MG
  4. BENICAR [Concomitant]
     Indication: HYPERTENSION
     Dosage: 20 MG

REACTIONS (3)
  - INFECTION [None]
  - FEELING COLD [None]
  - CONTUSION [None]
